FAERS Safety Report 11628348 (Version 1)
Quarter: 2015Q4

REPORT INFORMATION
  Report Type: Spontaneous
  Country: US (occurrence: None)
  Receive Date: 20151013
  Receipt Date: 20151013
  Transmission Date: 20160304
  Serious: Yes (Other)
  Sender: FDA-Public Use
  Company Number: None

PATIENT
  Age: 78 Year
  Sex: Female
  Weight: 47.63 kg

DRUGS (5)
  1. DICLOFENAC SOD [Suspect]
     Active Substance: DICLOFENAC SODIUM
     Indication: TENDONITIS
     Route: 048
     Dates: start: 20150915, end: 20150917
  2. MAGNESIUM [Concomitant]
     Active Substance: MAGNESIUM
  3. VIT. D-3 [Concomitant]
  4. VITAMIN C [Concomitant]
     Active Substance: ASCORBIC ACID
  5. VITAMIN B COMPLEX [Concomitant]
     Active Substance: CYANOCOBALAMIN\DEXPANTHENOL\NIACINAMIDE\PYRIDOXINE HYDROCHLORIDE\RIBOFLAVIN 5^-PHOSPHATE SODIUM\THIAMINE HYDROCHLORIDE\VITAMIN B COMPLEX

REACTIONS (2)
  - Dizziness [None]
  - Hypertension [None]

NARRATIVE: CASE EVENT DATE: 20150917
